FAERS Safety Report 25394537 (Version 4)
Quarter: 2025Q4

REPORT INFORMATION
  Report Type: Spontaneous
  Country: US (occurrence: US)
  Receive Date: 20250604
  Receipt Date: 20251216
  Transmission Date: 20260117
  Serious: Yes (Hospitalization, Other)
  Sender: SANOFI AVENTIS
  Company Number: US-SA-2025SA157683

PATIENT
  Age: 17 Year
  Sex: Male

DRUGS (5)
  1. DUPIXENT [Suspect]
     Active Substance: DUPILUMAB
     Indication: Dermatitis atopic
     Dosage: 400 MG, 1X
     Route: 058
     Dates: start: 202503, end: 202503
  2. DUPIXENT [Suspect]
     Active Substance: DUPILUMAB
     Dosage: 200 MG, QOW
     Route: 058
     Dates: start: 2025
  3. INFLUENZA VIRUS VACCINE [Suspect]
     Active Substance: INFLUENZA VIRUS VACCINE
     Dosage: UNK
  4. COVID-19 VACCINE NOS [Suspect]
     Active Substance: COVID-19 VACCINE
     Dosage: UNK
  5. MENINGOCOCCAL POLYSACCHARIDE VACCINE A NOS [Suspect]
     Active Substance: MENINGOCOCCAL POLYSACCHARIDE VACCINE A\NEISSERIA MENINGITIDIS GROUP A CAPSULAR POLYSACCHARIDE ANTIGE
     Dosage: UNK

REACTIONS (21)
  - Small intestinal obstruction [Recovered/Resolved]
  - Endoscopy gastrointestinal [Unknown]
  - Rhinorrhoea [Not Recovered/Not Resolved]
  - Nasal congestion [Not Recovered/Not Resolved]
  - Wheezing [Unknown]
  - Weight gain poor [Unknown]
  - Underweight [Unknown]
  - Pyrexia [Unknown]
  - Nasopharyngitis [Unknown]
  - Urinary tract infection [Recovering/Resolving]
  - Oropharyngeal pain [Unknown]
  - Eczema [Unknown]
  - Dry skin [Unknown]
  - Erythema [Unknown]
  - Pruritus [Unknown]
  - Dermatitis atopic [Unknown]
  - Skin exfoliation [Unknown]
  - Dry skin [Unknown]
  - Allergy to animal [Unknown]
  - Drug ineffective [Unknown]
  - Product dose omission in error [Unknown]

NARRATIVE: CASE EVENT DATE: 20250101
